FAERS Safety Report 7471609-6 (Version None)
Quarter: 2011Q2

REPORT INFORMATION
  Report Type: 
  Country: None (occurrence: None)
  Receive Date: 20110511
  Receipt Date: 20110329
  Transmission Date: 20111010
  Serious: Yes (Other)
  Sender: FDA-Public Use
  Company Number: US-BAYER-201034242NA

PATIENT
  Age: 32 Year
  Sex: Female

DRUGS (3)
  1. YASMIN [Suspect]
     Indication: CONTRACEPTION
  2. SYNTHROID [Concomitant]
     Indication: HYPOTHYROIDISM
     Dosage: 0.02 MG, QD
  3. YAZ [Suspect]
     Indication: CONTRACEPTION
     Dates: start: 20080501

REACTIONS (2)
  - CHOLECYSTITIS CHRONIC [None]
  - PAIN [None]
